FAERS Safety Report 8089774-9 (Version None)
Quarter: 2012Q1

REPORT INFORMATION
  Report Type: 
  Country: None (occurrence: None)
  Receive Date: 20120128
  Receipt Date: 20110713
  Transmission Date: 20120608
  Serious: No
  Sender: FDA-Public Use
  Company Number: US-ABBOTT-11P-163-0838678-00

PATIENT
  Age: 37 Year
  Sex: Female

DRUGS (4)
  1. HUMIRA [Suspect]
     Indication: CROHN'S DISEASE
  2. UNKNOWN MIGRAINE MEDICATION [Concomitant]
     Indication: MIGRAINE
  3. HUMIRA [Suspect]
     Indication: RHEUMATOID ARTHRITIS
     Dates: start: 20100101
  4. UNKNOWN MEDICATIONS [Concomitant]
     Indication: PRODUCT USED FOR UNKNOWN INDICATION

REACTIONS (4)
  - MIGRAINE [None]
  - INJECTION SITE PAIN [None]
  - FEELING ABNORMAL [None]
  - HEADACHE [None]
